FAERS Safety Report 9732904 (Version 2)
Quarter: 2013Q4

REPORT INFORMATION
  Report Type: Spontaneous
  Country: US (occurrence: US)
  Receive Date: 20131204
  Receipt Date: 20131204
  Transmission Date: 20140711
  Serious: No
  Sender: FDA-Public Use
  Company Number: US-GILEAD-2009-0021605

PATIENT
  Sex: Female
  Weight: 154.22 kg

DRUGS (17)
  1. LETAIRIS [Suspect]
     Indication: PULMONARY ARTERIAL HYPERTENSION
     Route: 048
  2. FUROSEMIDE [Concomitant]
  3. LISINOPRIL [Concomitant]
  4. NORVASC [Concomitant]
  5. SINGULAIR [Concomitant]
  6. ADVAIR [Concomitant]
  7. COMBIVENT [Concomitant]
  8. ZYPREXA [Concomitant]
  9. PIROXICAM [Concomitant]
  10. DETROL [Concomitant]
  11. WELLBUTRIN [Concomitant]
  12. NEXIUM [Concomitant]
  13. FENTANYL [Concomitant]
  14. OXYCODONE/APAP [Concomitant]
  15. POTASSIUM CHLORIDE [Concomitant]
  16. ASPIRIN [Concomitant]
  17. MULTIVITAMIN [Concomitant]

REACTIONS (1)
  - Adverse drug reaction [Unknown]
